FAERS Safety Report 8457927-3 (Version None)
Quarter: 2012Q2

REPORT INFORMATION
  Report Type: 
  Country: None (occurrence: None)
  Receive Date: 20120618
  Receipt Date: 20120618
  Transmission Date: 20120825
  Serious: No
  Sender: FDA-Public Use
  Company Number: None

PATIENT
  Sex: Male
  Weight: 41.7 kg

DRUGS (1)
  1. NORDIFLEX PEN 30MG/3ML NOVO NORDISK INC [Suspect]
     Dosage: 2.8 MG 6 TIMES A WK SUBCUTANEOUS
     Route: 058
     Dates: start: 20120104, end: 20120614

REACTIONS (1)
  - HEADACHE [None]
